FAERS Safety Report 21252213 (Version 6)
Quarter: 2022Q4

REPORT INFORMATION
  Report Type: Spontaneous
  Country: PL (occurrence: PL)
  Receive Date: 20220825
  Receipt Date: 20221007
  Transmission Date: 20230112
  Serious: Yes (Hospitalization, Other)
  Sender: FDA-Public Use
  Company Number: PL-Zentiva-2022-ZT-006939

PATIENT
  Age: 54 Year
  Sex: Female

DRUGS (12)
  1. ZOLPIDEM [Suspect]
     Active Substance: ZOLPIDEM TARTRATE
     Indication: Insomnia
     Dosage: 10 MILLIGRAM (QH, (6-8 TABLETS A DAY, 1 TABLET EVERY HOUR AT NIGHT)
     Route: 048
  2. ZOLPIDEM [Suspect]
     Active Substance: ZOLPIDEM TARTRATE
     Dosage: 10 MILLIGRAM, ONCE A DAY (QH, (6-8 TABLETS A DAY, 1 TABLET EVERY HOUR AT NIGHT)
     Route: 048
  3. ALPRAZOLAM [Suspect]
     Active Substance: ALPRAZOLAM
     Indication: Insomnia
     Dosage: 0.25 MILLIGRAM, ONCE A DAY (0.25 MILLIGRAM, PM, (0.25 MG IN THE EVENING)
     Route: 065
  4. ALPRAZOLAM [Suspect]
     Active Substance: ALPRAZOLAM
     Indication: Stress
     Dosage: 3 MILLIGRAM ((1 MG UP TO 3 TIMES A DAY))
     Route: 065
  5. ALPRAZOLAM [Suspect]
     Active Substance: ALPRAZOLAM
     Indication: Anxiety
     Dosage: 1 MILLIGRAM, ONCE A DAY
     Route: 065
  6. ALPRAZOLAM [Suspect]
     Active Substance: ALPRAZOLAM
     Dosage: 1 MILLIGRAM, TWO TIMES A DAY
     Route: 065
  7. ESTAZOLAM [Suspect]
     Active Substance: ESTAZOLAM
     Indication: Insomnia
     Dosage: 2 MILLIGRAM, ONCE A DAY (30 MINUTES BEFORE BEDTIME)
     Route: 065
  8. ESTAZOLAM [Suspect]
     Active Substance: ESTAZOLAM
     Dosage: 2 MILLIGRAM, 6-8 TABLETS PER DAY (1 TABLET EVERY HOUR AT NIGHT)
     Route: 065
  9. ACEMETACIN [Suspect]
     Active Substance: ACEMETACIN
     Indication: Rheumatoid arthritis
     Dosage: 90 MILLIGRAM, ONCE A DAY
     Route: 065
  10. ACEMETACIN [Suspect]
     Active Substance: ACEMETACIN
     Dosage: UNK (UP TO 6 TABLETS DAILY )
     Route: 048
  11. METHYLPREDNISOLONE [Suspect]
     Active Substance: METHYLPREDNISOLONE
     Indication: Rheumatoid arthritis
     Dosage: 4 MILLIGRAM, ONCE A DAY
     Route: 065
  12. METHOTREXATE [Suspect]
     Active Substance: METHOTREXATE
     Indication: Rheumatoid arthritis
     Dosage: 10 MILLIGRAM PER WEEK
     Route: 065

REACTIONS (19)
  - Drug dependence [Unknown]
  - Intentional product use issue [Unknown]
  - Impaired quality of life [Unknown]
  - Drug abuse [Recovering/Resolving]
  - Arthropathy [Recovering/Resolving]
  - Loss of personal independence in daily activities [Unknown]
  - Drug ineffective [Not Recovered/Not Resolved]
  - Intentional product misuse [Unknown]
  - Circumstance or information capable of leading to medication error [Unknown]
  - Insomnia [Unknown]
  - Drug effect less than expected [Unknown]
  - Drug intolerance [Unknown]
  - Treatment failure [Unknown]
  - Tachycardia [Unknown]
  - Arthralgia [Unknown]
  - Therapeutic product effect incomplete [Unknown]
  - Peripheral swelling [Unknown]
  - Scar [Unknown]
  - Obesity [Unknown]
